FAERS Safety Report 12546777 (Version 2)
Quarter: 2016Q3

REPORT INFORMATION
  Report Type: Report from Study
  Country: US (occurrence: US)
  Receive Date: 20160711
  Receipt Date: 20160719
  Transmission Date: 20161109
  Serious: Yes (Death, Hospitalization)
  Sender: FDA-Public Use
  Company Number: US-VERTEX PHARMACEUTICALS-2016-004220

PATIENT
  Sex: Female

DRUGS (6)
  1. PULMOZYME [Suspect]
     Active Substance: DORNASE ALFA
     Indication: CYSTIC FIBROSIS
     Dosage: 1 MG/ML, QD
     Route: 055
     Dates: start: 20130424, end: 20160623
  2. SODIUM CHLORIDE. [Concomitant]
     Active Substance: SODIUM CHLORIDE
  3. OXYGEN. [Concomitant]
     Active Substance: OXYGEN
  4. ORKAMBI [Suspect]
     Active Substance: IVACAFTOR\LUMACAFTOR
     Indication: CYSTIC FIBROSIS
     Dosage: (250/125MG) 2 DF, BID
     Route: 048
     Dates: start: 20150814, end: 20160623
  5. FLONASE [Concomitant]
     Active Substance: FLUTICASONE PROPIONATE
  6. SEREVENT DISKUS [Concomitant]
     Active Substance: SALMETEROL XINAFOATE

REACTIONS (3)
  - Infective pulmonary exacerbation of cystic fibrosis [Fatal]
  - Haemoptysis [Fatal]
  - Hospitalisation [Unknown]

NARRATIVE: CASE EVENT DATE: 2016
